FAERS Safety Report 6675124-9 (Version None)
Quarter: 2010Q2

REPORT INFORMATION
  Report Type: 
  Country: None (occurrence: None)
  Receive Date: 20100407
  Receipt Date: 20100401
  Transmission Date: 20101027
  Serious: Yes (Hospitalization, Other)
  Sender: FDA-Public Use
  Company Number: SPV1-2010-00371

PATIENT
  Age: 49 Year
  Sex: Male

DRUGS (9)
  1. FOSRENOL [Suspect]
     Indication: HYPERPHOSPHATAEMIA
     Dosage: 750 MG TOTAL DAILY DOSE, ORAL
     Route: 048
     Dates: start: 20100208, end: 20100222
  2. MEROPENEM [Suspect]
     Indication: SUBDIAPHRAGMATIC ABSCESS
     Dosage: INTRAVENOUS
     Route: 042
     Dates: start: 20100129, end: 20100219
  3. VANCOMYCIN [Concomitant]
  4. PAXIL [Concomitant]
  5. ASPIRIN [Concomitant]
  6. RENAGEL [Concomitant]
  7. MELOXICAM [Concomitant]
  8. LANSOPRAZOLE [Concomitant]
  9. CLARITIN /00413701/ (GLICLAZIDE) [Concomitant]

REACTIONS (4)
  - DERMATITIS ALLERGIC [None]
  - DRUG ERUPTION [None]
  - GRANULOCYTE COUNT DECREASED [None]
  - WHITE BLOOD CELL COUNT DECREASED [None]
